FAERS Safety Report 4882693-8 (Version None)
Quarter: 2006Q1

REPORT INFORMATION
  Report Type: 
  Country: None (occurrence: None)
  Receive Date: 20060113
  Receipt Date: 20060103
  Transmission Date: 20060701
  Serious: Yes (Hospitalization)
  Sender: FDA-Public Use
  Company Number: 236540K05USA

PATIENT
  Age: 37 Year
  Sex: Female

DRUGS (1)
  1. REBIF [Suspect]
     Indication: MULTIPLE SCLEROSIS
     Dosage: 44 MCG
     Dates: start: 20050622, end: 20050801

REACTIONS (8)
  - ARTHRITIS [None]
  - BLOOD PRESSURE SYSTOLIC DECREASED [None]
  - BODY TEMPERATURE INCREASED [None]
  - DARK CIRCLES UNDER EYES [None]
  - DYSPNOEA [None]
  - HEART RATE INCREASED [None]
  - MUSCLE ATROPHY [None]
  - MUSCLE SPASMS [None]
